FAERS Safety Report 20563600 (Version 3)
Quarter: 2022Q2

REPORT INFORMATION
  Report Type: Report from Study
  Country: CA (occurrence: CA)
  Receive Date: 20220308
  Receipt Date: 20220411
  Transmission Date: 20220721
  Serious: Yes (Other)
  Sender: FDA-Public Use
  Company Number: CA-NOVOPROD-895493

PATIENT
  Age: 77 Year
  Sex: Female
  Weight: 77 kg

DRUGS (3)
  1. SEMAGLUTIDE [Suspect]
     Active Substance: SEMAGLUTIDE
     Indication: Obesity
     Dosage: 0.24 MG, QW
     Route: 058
     Dates: start: 20190919, end: 20220225
  2. SEMAGLUTIDE [Suspect]
     Active Substance: SEMAGLUTIDE
     Dosage: UNK
     Dates: start: 20200727, end: 20220221
  3. SEMAGLUTIDE [Suspect]
     Active Substance: SEMAGLUTIDE
     Dosage: UNK
     Dates: start: 20190919, end: 20200706

REACTIONS (1)
  - Autoimmune thyroiditis [Not Recovered/Not Resolved]

NARRATIVE: CASE EVENT DATE: 20220221
